FAERS Safety Report 15408290 (Version 1)
Quarter: 2018Q3

REPORT INFORMATION
  Report Type: Spontaneous
  Country: DE (occurrence: DE)
  Receive Date: 20180920
  Receipt Date: 20180920
  Transmission Date: 20181010
  Serious: Yes (Death, Other)
  Sender: FDA-Public Use
  Company Number: DE-EXELIXIS-CABO-18015988

PATIENT
  Age: 23 Year
  Sex: Male

DRUGS (2)
  1. ZOLEDRONATE [Suspect]
     Active Substance: ZOLEDRONIC ACID
  2. CABOMETYX [Suspect]
     Active Substance: CABOZANTINIB S-MALATE
     Indication: MEDULLARY THYROID CANCER

REACTIONS (7)
  - Malignant neoplasm progression [Fatal]
  - Thrombotic microangiopathy [Unknown]
  - Hyperkalaemia [Unknown]
  - Thrombocytopenia [Unknown]
  - Anaemia [Unknown]
  - Proteinuria [Unknown]
  - Blood lactate dehydrogenase increased [Unknown]
